FAERS Safety Report 8542442-9 (Version None)
Quarter: 2012Q3

REPORT INFORMATION
  Report Type: 
  Country: None (occurrence: None)
  Receive Date: 20120726
  Receipt Date: 20111031
  Transmission Date: 20120928
  Serious: Yes (Other)
  Sender: FDA-Public Use
  Company Number: US-ASTRAZENECA-2007UW03000

PATIENT
  Age: 42 Year
  Sex: Female
  Weight: 93.4 kg

DRUGS (16)
  1. CLONAZEPAM [Concomitant]
     Dates: start: 20030205
  2. NORVASC [Concomitant]
     Dates: start: 20030331
  3. SYNTHROID [Concomitant]
     Indication: HYPOTHYROIDISM
     Dosage: 100-125 MCG
     Dates: start: 20030624
  4. PREMARIN [Concomitant]
     Dates: start: 20040211
  5. AVANDIA [Concomitant]
     Dates: start: 20040211
  6. SEROQUEL [Suspect]
     Indication: BIPOLAR DISORDER
     Route: 048
     Dates: start: 19990101, end: 20060901
  7. LIPITOR [Concomitant]
     Dates: start: 20020930
  8. AMI-TEX LA [Concomitant]
     Dosage: 30-600 MG
     Dates: start: 20030614
  9. PROZAC [Concomitant]
     Dates: start: 20040211
  10. FLUOXETINE HCL [Concomitant]
     Dates: start: 20020912
  11. DIFLUCAN [Concomitant]
     Dates: start: 20030620
  12. ESKALITH CR [Concomitant]
     Dates: start: 20040211
  13. NEXIUM [Concomitant]
     Indication: GASTROOESOPHAGEAL REFLUX DISEASE
     Dates: start: 20020605
  14. SEROQUEL [Suspect]
     Dosage: 100-300 MG
     Route: 048
     Dates: start: 20030205
  15. ACETAMINOPHEN AND HYDROCODONE BITARTRATE [Concomitant]
     Dosage: 7.5-500
     Dates: start: 20030614
  16. KLONOPIN [Concomitant]
     Dates: start: 20040211

REACTIONS (2)
  - TARDIVE DYSKINESIA [None]
  - DIABETES MELLITUS [None]
